FAERS Safety Report 14403426 (Version 3)
Quarter: 2018Q1

REPORT INFORMATION
  Report Type: Report from Study
  Country: None (occurrence: US)
  Receive Date: 20180117
  Receipt Date: 20180220
  Transmission Date: 20180509
  Serious: Yes (Other)
  Sender: FDA-Public Use
  Company Number: US-ABBVIE-18K-163-2226753-00

PATIENT
  Sex: Male
  Weight: 87.62 kg

DRUGS (9)
  1. LEXAPRO [Concomitant]
     Active Substance: ESCITALOPRAM OXALATE
     Indication: DEPRESSION
  2. HUMIRA [Suspect]
     Active Substance: ADALIMUMAB
     Indication: PSORIASIS
     Route: 058
     Dates: start: 201305
  3. BUPROPION. [Concomitant]
     Active Substance: BUPROPION
     Indication: AFFECT LABILITY
  4. LISINOPRIL. [Concomitant]
     Active Substance: LISINOPRIL
     Indication: HYPERTENSION
  5. HUMIRA [Suspect]
     Active Substance: ADALIMUMAB
     Indication: PSORIATIC ARTHROPATHY
  6. GABAPENTIN. [Concomitant]
     Active Substance: GABAPENTIN
     Indication: RESTLESS LEGS SYNDROME
  7. ZYRTEC [Concomitant]
     Active Substance: CETIRIZINE HYDROCHLORIDE
     Indication: SEASONAL ALLERGY
  8. LEXAPRO [Concomitant]
     Active Substance: ESCITALOPRAM OXALATE
     Indication: ANXIETY
  9. SIMVASTATIN. [Concomitant]
     Active Substance: SIMVASTATIN
     Indication: BLOOD CHOLESTEROL INCREASED

REACTIONS (12)
  - Eye swelling [Recovered/Resolved]
  - Thermal burn [Recovered/Resolved]
  - Postoperative respiratory distress [Recovered/Resolved]
  - Conjunctivitis [Recovered/Resolved]
  - Tooth infection [Recovering/Resolving]
  - Fall [Recovered/Resolved]
  - Colitis microscopic [Recovering/Resolving]
  - Ear pain [Recovering/Resolving]
  - Rotator cuff syndrome [Recovered/Resolved]
  - Injection site pain [Recovered/Resolved]
  - Pain [Unknown]
  - Zoonosis [Recovered/Resolved]

NARRATIVE: CASE EVENT DATE: 2014
